FAERS Safety Report 5432895-7 (Version None)
Quarter: 2007Q3

REPORT INFORMATION
  Report Type: 
  Country: None (occurrence: None)
  Receive Date: 20070831
  Receipt Date: 20070712
  Transmission Date: 20080115
  Serious: No
  Sender: FDA-Public Use
  Company Number: A0663199A

PATIENT
  Age: 60 Year
  Sex: Male

DRUGS (3)
  1. ALLI [Suspect]
     Dates: end: 20070708
  2. PRAVACHOL [Concomitant]
  3. OCUVITE [Concomitant]

REACTIONS (2)
  - BLOOD POTASSIUM INCREASED [None]
  - DRUG INTERACTION [None]
